FAERS Safety Report 5988287-5 (Version None)
Quarter: 2008Q4

REPORT INFORMATION
  Report Type: 
  Country: None (occurrence: None)
  Receive Date: 20081204
  Receipt Date: 20081124
  Transmission Date: 20090506
  Serious: Yes (Hospitalization, Other)
  Sender: FDA-Public Use
  Company Number: 231785K08USA

PATIENT
  Sex: Female

DRUGS (1)
  1. REBIF [Suspect]
     Indication: MULTIPLE SCLEROSIS
     Dates: start: 20040101, end: 20080101

REACTIONS (3)
  - CONDITION AGGRAVATED [None]
  - INTERVERTEBRAL DISC DISORDER [None]
  - MULTIPLE SCLEROSIS [None]
